FAERS Safety Report 11381656 (Version 1)
Quarter: 2015Q3

REPORT INFORMATION
  Report Type: Spontaneous
  Country: US (occurrence: US)
  Receive Date: 20150814
  Receipt Date: 20150814
  Transmission Date: 20151125
  Serious: No
  Sender: FDA-Public Use
  Company Number: US-GALDERMA-US14004171

PATIENT
  Sex: Female

DRUGS (5)
  1. CLEOCIN LOTION [Concomitant]
     Route: 061
  2. MINOCIN [Concomitant]
     Active Substance: MINOCYCLINE HYDROCHLORIDE
     Dosage: 100 MG
     Route: 048
     Dates: start: 201302
  3. DIFFERIN [Suspect]
     Active Substance: ADAPALENE
     Indication: ACNE
     Dosage: 0.3%
     Route: 061
     Dates: start: 200810, end: 201407
  4. DIFFERIN [Suspect]
     Active Substance: ADAPALENE
     Indication: ACNE
     Dosage: 0.1%
     Route: 061
     Dates: start: 20130708
  5. UNKNOWN MOISTURIZER [Concomitant]
     Route: 061

REACTIONS (2)
  - Drug ineffective [Unknown]
  - Dry skin [Unknown]
